FAERS Safety Report 5888425-9 (Version None)
Quarter: 2008Q3

REPORT INFORMATION
  Report Type: 
  Country: None (occurrence: None)
  Receive Date: 20080918
  Receipt Date: 20080906
  Transmission Date: 20090109
  Serious: Yes (Other)
  Sender: FDA-Public Use
  Company Number: CA-PFIZER INC-2008076438

PATIENT
  Sex: Male

DRUGS (1)
  1. CHANTIX [Suspect]
     Indication: SMOKING CESSATION THERAPY
     Dates: start: 20080801, end: 20080902

REACTIONS (8)
  - AGGRESSION [None]
  - DEPRESSION [None]
  - HOSTILITY [None]
  - LOSS OF EMPLOYMENT [None]
  - NERVOUSNESS [None]
  - SELF INJURIOUS BEHAVIOUR [None]
  - SUICIDAL IDEATION [None]
  - TEARFULNESS [None]
